FAERS Safety Report 9789095 (Version 1)
Quarter: 2013Q4

REPORT INFORMATION
  Report Type: Spontaneous
  Country: AU (occurrence: AU)
  Receive Date: 20131230
  Receipt Date: 20131230
  Transmission Date: 20140711
  Serious: Yes (Other)
  Sender: FDA-Public Use
  Company Number: PHHY2013AU151657

PATIENT
  Age: 73 Year
  Sex: Male

DRUGS (1)
  1. SOTALOL [Suspect]
     Indication: ATRIAL FLUTTER
     Dosage: 40 MG, BID
     Route: 048

REACTIONS (10)
  - Cardiogenic shock [Unknown]
  - Malaise [Unknown]
  - Hyperhidrosis [Unknown]
  - Asthenia [Unknown]
  - Nausea [Unknown]
  - Hypoperfusion [Unknown]
  - Blood pressure systolic decreased [Unknown]
  - Cardiomyopathy [Unknown]
  - Chest pain [Unknown]
  - Left ventricular dysfunction [Recovered/Resolved]
